FAERS Safety Report 8836314 (Version 2)
Quarter: 2012Q4

REPORT INFORMATION
  Report Type: 
  Country: US (occurrence: US)
  Receive Date: 20121011
  Receipt Date: 20121105
  Transmission Date: 20130627
  Serious: No
  Sender: FDA-Public Use
  Company Number: US-ASTRAZENECA-2012SE76550

PATIENT
  Age: 85 Year
  Sex: Female

DRUGS (2)
  1. CRESTOR [Suspect]
     Route: 048
  2. PRAVASTATIN [Suspect]
     Route: 048

REACTIONS (3)
  - Blood pressure increased [Recovering/Resolving]
  - Swelling [Recovering/Resolving]
  - Malaise [Unknown]
